FAERS Safety Report 4481144-5 (Version None)
Quarter: 2004Q4

REPORT INFORMATION
  Report Type: 
  Country: None (occurrence: None)
  Receive Date: 20041021
  Receipt Date: 20041018
  Transmission Date: 20050328
  Serious: Yes (Life-Threatening, Hospitalization, Other)
  Sender: FDA-Public Use
  Company Number: BR-MERCK-0410BRA00383

PATIENT
  Age: 65 Year
  Sex: Female

DRUGS (4)
  1. VIOXX [Suspect]
     Indication: PAIN
     Route: 048
     Dates: start: 20030401, end: 20030401
  2. VIOXX [Suspect]
     Route: 048
     Dates: start: 20031101, end: 20030101
  3. ATENOLOL [Concomitant]
     Indication: HYPERTENSION
     Route: 048
     Dates: start: 20030301
  4. THIOCOLCHICOSIDE [Concomitant]
     Indication: FIBROMYALGIA
     Route: 048
     Dates: start: 20030101, end: 20030101

REACTIONS (4)
  - ARRHYTHMIA [None]
  - CHEST PAIN [None]
  - DIZZINESS [None]
  - HYPERTENSIVE CRISIS [None]
